FAERS Safety Report 9329058 (Version 1)
Quarter: 2013Q2

REPORT INFORMATION
  Report Type: Spontaneous
  Country: US (occurrence: US)
  Receive Date: 20130604
  Receipt Date: 20130604
  Transmission Date: 20140414
  Serious: Yes (Other)
  Sender: FDA-Public Use
  Company Number: US-GLAXOSMITHKLINE-A1024910A

PATIENT
  Sex: Female

DRUGS (4)
  1. WELLBUTRIN [Suspect]
     Indication: WEIGHT DECREASED
     Dates: start: 201209
  2. DEXILANT [Concomitant]
  3. GLUMETZA [Concomitant]
  4. SPIRONOLACTONE [Concomitant]

REACTIONS (7)
  - Cognitive disorder [Recovering/Resolving]
  - Confusional state [Recovering/Resolving]
  - Fatigue [Recovering/Resolving]
  - Sinusitis [Recovering/Resolving]
  - Memory impairment [Recovering/Resolving]
  - Educational problem [Recovering/Resolving]
  - Off label use [Unknown]
